FAERS Safety Report 6986316-3 (Version None)
Quarter: 2010Q3

REPORT INFORMATION
  Report Type: 
  Country: None (occurrence: None)
  Receive Date: 20100915
  Receipt Date: 20090624
  Transmission Date: 20110219
  Serious: No
  Sender: FDA-Public Use
  Company Number: US-WYE-H09904109

PATIENT

DRUGS (1)
  1. PRISTIQ [Suspect]
     Dosage: 50 MG (FREQUENCY UNSPECIFIED)

REACTIONS (2)
  - CONTUSION [None]
  - SKIN LACERATION [None]
